FAERS Safety Report 13156543 (Version 1)
Quarter: 2017Q1

REPORT INFORMATION
  Report Type: Spontaneous
  Country: PT (occurrence: PT)
  Receive Date: 20170126
  Receipt Date: 20170126
  Transmission Date: 20170428
  Serious: Yes (Other)
  Sender: FDA-Public Use
  Company Number: PT-IMPAX LABORATORIES, INC-2017-IPXL-00107

PATIENT
  Sex: Female

DRUGS (3)
  1. PYRIDOSTIGMINE BROMIDE. [Suspect]
     Active Substance: PYRIDOSTIGMINE BROMIDE
     Indication: MYASTHENIA GRAVIS
     Dosage: 540 MG, 1 /DAY
     Route: 065
  2. IMMUNOGLOBULIN                     /07494701/ [Concomitant]
     Active Substance: IMMUNE GLOBULIN NOS
     Dosage: EVERY FOUR WEEKS
  3. PREDNISOLONE. [Concomitant]
     Active Substance: PREDNISOLONE
     Indication: MYASTHENIA GRAVIS
     Dosage: 50 MG, 1 /DAY
     Route: 065

REACTIONS (2)
  - Myasthenia gravis crisis [Recovering/Resolving]
  - Exposure during pregnancy [Unknown]
